FAERS Safety Report 4499312-5 (Version None)
Quarter: 2004Q4

REPORT INFORMATION
  Report Type: 
  Country: None (occurrence: None)
  Receive Date: 20040928
  Receipt Date: 20040728
  Transmission Date: 20050328
  Serious: No
  Sender: FDA-Public Use
  Company Number: 04P-163-0268414-00

PATIENT
  Age: 55 Year
  Sex: Female
  Weight: 88.4514 kg

DRUGS (8)
  1. HUMIRA [Suspect]
     Indication: PSORIATIC ARTHROPATHY
     Dosage: 40 MG, 1 IN 2 WK, SUBCUTANEOUS
     Route: 058
     Dates: start: 20030701
  2. DIOVAN [Concomitant]
  3. PANTOPRAZOLE [Concomitant]
  4. ESTRIOL [Concomitant]
  5. NORTRIP [Concomitant]
  6. GABAPENTIN [Concomitant]
  7. MULTI-VITAMINS [Concomitant]
  8. PYRIDOXINE HYDROCHLORIDE [Concomitant]

REACTIONS (6)
  - DRUG EFFECT DECREASED [None]
  - INJECTION SITE ERYTHEMA [None]
  - INJECTION SITE NODULE [None]
  - INJECTION SITE PRURITUS [None]
  - INJECTION SITE STINGING [None]
  - INJECTION SITE WARMTH [None]
